FAERS Safety Report 6464984-2 (Version None)
Quarter: 2009Q4

REPORT INFORMATION
  Report Type: 
  Country: None (occurrence: None)
  Receive Date: 20091124
  Receipt Date: 20091113
  Transmission Date: 20100525
  Serious: Yes (Death)
  Sender: FDA-Public Use
  Company Number: DAV-AE-ALP-09-017

PATIENT
  Age: 43 Year
  Sex: Female

DRUGS (5)
  1. ALPRAZOLAM [Suspect]
     Dosage: 2 MG TID PO
     Route: 048
  2. ZIPRASIDONE HCL [Concomitant]
  3. CITALOPRAM HYDROBROMIDE [Concomitant]
  4. ZOLPIDEM [Concomitant]
  5. DIAZEPAM [Concomitant]

REACTIONS (23)
  - ABNORMAL BEHAVIOUR [None]
  - ARTERIOSCLEROSIS [None]
  - BLOOD PRESSURE INCREASED [None]
  - BODY TEMPERATURE INCREASED [None]
  - CARDIOMYOPATHY [None]
  - CONTUSION [None]
  - CONVERSION DISORDER [None]
  - CYANOSIS [None]
  - DISORIENTATION [None]
  - DRUG ABUSE [None]
  - DRUG SCREEN POSITIVE [None]
  - DRUG WITHDRAWAL SYNDROME [None]
  - EXCORIATION [None]
  - HALLUCINATION, AUDITORY [None]
  - HALLUCINATION, VISUAL [None]
  - HEART RATE INCREASED [None]
  - INCORRECT DOSE ADMINISTERED [None]
  - INSOMNIA [None]
  - MENTAL STATUS CHANGES [None]
  - OVERDOSE [None]
  - POSTURING [None]
  - RESPIRATORY ARREST [None]
  - TREMOR [None]
